FAERS Safety Report 7437898-9 (Version None)
Quarter: 2011Q2

REPORT INFORMATION
  Report Type: 
  Country: None (occurrence: None)
  Receive Date: 20110426
  Receipt Date: 20110420
  Transmission Date: 20111010
  Serious: Yes (Hospitalization)
  Sender: FDA-Public Use
  Company Number: B0712618A

PATIENT
  Sex: Male
  Weight: 97.3 kg

DRUGS (9)
  1. SERTRALINE [Concomitant]
  2. INSULIN [Concomitant]
  3. AVANDIA [Suspect]
     Indication: DIABETES MELLITUS
     Route: 048
  4. VARDENAFIL [Concomitant]
  5. NICOTINE PATCH [Concomitant]
  6. ALBUTEROL [Concomitant]
  7. LISINOPRIL [Concomitant]
  8. METFORMIN [Concomitant]
  9. METOPROLOL [Concomitant]

REACTIONS (2)
  - MYOCARDIAL INFARCTION [None]
  - ARTERIOSCLEROSIS [None]
